FAERS Safety Report 22726365 (Version 2)
Quarter: 2024Q1

REPORT INFORMATION
  Report Type: Spontaneous
  Country: US (occurrence: US)
  Receive Date: 20230720
  Receipt Date: 20240307
  Transmission Date: 20240410
  Serious: Yes (Life-Threatening, Hospitalization, Other)
  Sender: FDA-Public Use
  Company Number: None

PATIENT
  Age: 67 Year
  Sex: Female

DRUGS (6)
  1. PREDNISOLONE [Suspect]
     Active Substance: PREDNISOLONE
     Indication: Mesenteric panniculitis
     Dosage: 30 MILLIGRAM, LONG-TERM
     Route: 065
  2. PREDNISOLONE [Suspect]
     Active Substance: PREDNISOLONE
     Indication: Immunosuppressant drug therapy
  3. CYTOXAN [Suspect]
     Active Substance: CYCLOPHOSPHAMIDE
     Indication: Mesenteric panniculitis
     Dosage: UNK
     Route: 065
  4. CYTOXAN [Suspect]
     Active Substance: CYCLOPHOSPHAMIDE
     Indication: Immunosuppressant drug therapy
  5. IMURAN [Suspect]
     Active Substance: AZATHIOPRINE
     Indication: Mesenteric panniculitis
     Dosage: UNK
     Route: 065
  6. IMURAN [Suspect]
     Active Substance: AZATHIOPRINE
     Indication: Immunosuppressant drug therapy

REACTIONS (8)
  - Acute respiratory failure [Unknown]
  - Troponin increased [Unknown]
  - Pulmonary fibrosis [Unknown]
  - Hyponatraemia [Unknown]
  - Pneumocystis jirovecii pneumonia [Unknown]
  - Adenovirus infection [Unknown]
  - Pneumonia adenoviral [Unknown]
  - Drug resistance [Unknown]
